FAERS Safety Report 4812956-3 (Version None)
Quarter: 2005Q4

REPORT INFORMATION
  Report Type: 
  Country: None (occurrence: None)
  Receive Date: 20051028
  Receipt Date: 20050523
  Transmission Date: 20060501
  Serious: No
  Sender: FDA-Public Use
  Company Number: US-GLAXOSMITHKLINE-A0559775A

PATIENT
  Age: 10 Year
  Sex: Female
  Weight: 30.5 kg

DRUGS (2)
  1. ADVAIR DISKUS 100/50 [Suspect]
     Indication: ASTHMA
     Dosage: 1PUFF TWICE PER DAY
     Route: 055
     Dates: start: 20050101
  2. SINGULAIR [Concomitant]
     Dosage: 10MG PER DAY
     Route: 048

REACTIONS (3)
  - HEART RATE INCREASED [None]
  - PYREXIA [None]
  - URINARY TRACT INFECTION [None]
